FAERS Safety Report 9710413 (Version 2)
Quarter: 2013Q4

REPORT INFORMATION
  Report Type: Spontaneous
  Country: US (occurrence: US)
  Receive Date: 20131126
  Receipt Date: 20131126
  Transmission Date: 20140711
  Serious: No
  Sender: FDA-Public Use
  Company Number: US-BRISTOL-MYERS SQUIBB COMPANY-18977942

PATIENT
  Age: 67 Year
  Sex: Male

DRUGS (5)
  1. BYDUREON [Suspect]
     Indication: TYPE 2 DIABETES MELLITUS
     Route: 058
     Dates: start: 20130414
  2. METFORMIN [Concomitant]
  3. LIPITOR [Concomitant]
  4. DILTIAZEM HCL [Concomitant]
  5. DIOVAN [Concomitant]

REACTIONS (1)
  - Injection site nodule [Not Recovered/Not Resolved]
